FAERS Safety Report 9172260 (Version 2)
Quarter: 2013Q2

REPORT INFORMATION
  Report Type: Spontaneous
  Country: US (occurrence: US)
  Receive Date: 20130319
  Receipt Date: 20130429
  Transmission Date: 20140414
  Serious: Yes (Death, Hospitalization, Other)
  Sender: FDA-Public Use
  Company Number: US-LUNDBECK-DKLU1088944

PATIENT
  Age: 0 Year
  Sex: Male
  Weight: 6 kg

DRUGS (15)
  1. SABRIL (FOR ORAL SOLUTION) [Suspect]
     Indication: INFANTILE SPASMS
     Route: 048
     Dates: start: 20130128
  2. SABRIL (FOR ORAL SOLUTION) [Suspect]
     Route: 048
     Dates: start: 201302
  3. SABRIL (FOR ORAL SOLUTION) [Suspect]
     Route: 048
  4. SABRIL (FOR ORAL SOLUTION) [Suspect]
     Route: 048
  5. CLONAZEPAM [Concomitant]
     Indication: EARLY INFANTILE EPILEPTIC ENCEPHALOPATHY WITH BURST-SUPPRESSION
  6. KEPPRA [Concomitant]
     Indication: EARLY INFANTILE EPILEPTIC ENCEPHALOPATHY WITH BURST-SUPPRESSION
  7. TOPAMAX [Concomitant]
     Indication: EARLY INFANTILE EPILEPTIC ENCEPHALOPATHY WITH BURST-SUPPRESSION
     Dosage: 10 MG/KG/DAY
  8. PHENOBARBITAL [Concomitant]
     Indication: EARLY INFANTILE EPILEPTIC ENCEPHALOPATHY WITH BURST-SUPPRESSION
     Dates: start: 20120814
  9. PHENOBARBITAL [Concomitant]
  10. PYRIDOXINE [Concomitant]
     Indication: CONVULSION
     Route: 050
  11. PYRIDOXINE [Concomitant]
     Route: 050
  12. LANSOPRAZOLE [Concomitant]
     Indication: PRODUCT USED FOR UNKNOWN INDICATION
  13. SPIRONOLACTONE [Concomitant]
     Indication: PRODUCT USED FOR UNKNOWN INDICATION
  14. MIRALAX [Concomitant]
     Indication: PRODUCT USED FOR UNKNOWN INDICATION
  15. ROBINUL [Concomitant]
     Indication: PRODUCT USED FOR UNKNOWN INDICATION
     Route: 048

REACTIONS (3)
  - Neonatal disorder [Fatal]
  - Viral infection [Unknown]
  - Upper respiratory tract infection [Unknown]
